FAERS Safety Report 14733163 (Version 2)
Quarter: 2018Q2

REPORT INFORMATION
  Report Type: Spontaneous
  Country: US (occurrence: US)
  Receive Date: 20180409
  Receipt Date: 20180530
  Transmission Date: 20180711
  Serious: Yes (Death, Life-Threatening, Hospitalization)
  Sender: FDA-Public Use
  Company Number: US-SUN PHARMACEUTICAL INDUSTRIES LTD-2018US-168894

PATIENT
  Age: 67 Year
  Sex: Female

DRUGS (1)
  1. PROPYLTHIOURACIL. [Suspect]
     Active Substance: PROPYLTHIOURACIL
     Indication: HYPERTHYROIDISM
     Route: 065

REACTIONS (4)
  - Septic shock [Fatal]
  - Multiple organ dysfunction syndrome [Fatal]
  - Aplastic anaemia [Unknown]
  - Neutropenia [Unknown]
